FAERS Safety Report 6415725-6 (Version None)
Quarter: 2009Q4

REPORT INFORMATION
  Report Type: 
  Country: None (occurrence: None)
  Receive Date: 20091027
  Receipt Date: 20091013
  Transmission Date: 20100525
  Serious: Yes (Death)
  Sender: FDA-Public Use
  Company Number: CN-PFIZER INC-2009283294

PATIENT

DRUGS (1)
  1. SOLU-MEDROL [Suspect]
     Indication: INTERSTITIAL LUNG DISEASE
     Dosage: 80 MG, 1X/DAY
     Route: 042

REACTIONS (4)
  - DIZZINESS [None]
  - DYSPHORIA [None]
  - HOT FLUSH [None]
  - INTERSTITIAL LUNG DISEASE [None]
